FAERS Safety Report 9064442 (Version 1)
Quarter: 2013Q1

REPORT INFORMATION
  Report Type: Spontaneous
  Country: US (occurrence: US)
  Receive Date: 20130128
  Receipt Date: 20130128
  Transmission Date: 20140127
  Serious: Yes (Other)
  Sender: FDA-Public Use
  Company Number: PHEH2013US002028

PATIENT
  Sex: Female

DRUGS (1)
  1. DIOVAN HCT [Suspect]
     Dosage: 1 DF (320 MG VALS/ 12.5 MG HCTZ), UNK

REACTIONS (9)
  - Diabetes mellitus [Unknown]
  - Back disorder [Unknown]
  - Limb discomfort [Unknown]
  - Gastrooesophageal reflux disease [Unknown]
  - Pain [Unknown]
  - Eye disorder [Unknown]
  - Blood pressure increased [Unknown]
  - Headache [Unknown]
  - Myalgia [Unknown]
